FAERS Safety Report 8960335 (Version 1)
Quarter: 2012Q4

REPORT INFORMATION
  Report Type: 
  Country: US (occurrence: US)
  Receive Date: 20121211
  Receipt Date: 20121211
  Transmission Date: 20130627
  Serious: No
  Sender: FDA-Public Use
  Company Number: US-009507513-1212USA001799

PATIENT
  Sex: Female

DRUGS (3)
  1. CLARITIN-D 24 HOUR [Suspect]
     Indication: SINUSITIS
     Dosage: 10 mg, qd
     Route: 048
     Dates: start: 20121004, end: 20121102
  2. ZYRTEC [Suspect]
     Indication: SINUSITIS
     Route: 048
  3. NASONEX [Suspect]
     Indication: SINUSITIS
     Dosage: UNK, Unknown

REACTIONS (5)
  - Headache [Recovered/Resolved]
  - Dry mouth [Recovered/Resolved]
  - Dizziness [Recovered/Resolved]
  - Ear pain [Not Recovered/Not Resolved]
  - Vertigo [Not Recovered/Not Resolved]
